FAERS Safety Report 5651033-9 (Version None)
Quarter: 2008Q1

REPORT INFORMATION
  Report Type: 
  Country: None (occurrence: None)
  Receive Date: 20080305
  Receipt Date: 20080227
  Transmission Date: 20080703
  Serious: Yes (Death, Hospitalization)
  Sender: FDA-Public Use
  Company Number: A0712244A

PATIENT
  Age: 78 Year
  Sex: Male

DRUGS (5)
  1. FLONASE [Suspect]
     Dosage: 2SPR TWICE PER DAY
     Route: 045
     Dates: end: 20041021
  2. BLOOD PRESSURE MEDICATION [Concomitant]
  3. ZANTAC 150 [Concomitant]
  4. OXYCONTIN [Concomitant]
  5. EYE DROPS [Concomitant]

REACTIONS (1)
  - LUNG CANCER METASTATIC [None]
